FAERS Safety Report 25816260 (Version 2)
Quarter: 2025Q4

REPORT INFORMATION
  Report Type: Report from Study
  Country: US (occurrence: US)
  Receive Date: 20250918
  Receipt Date: 20251115
  Transmission Date: 20260117
  Serious: Yes (Hospitalization)
  Sender: ABBVIE
  Company Number: US-ABBVIE-6462612

PATIENT
  Age: 48 Year
  Sex: Female

DRUGS (1)
  1. RINVOQ [Suspect]
     Active Substance: UPADACITINIB
     Indication: Ankylosing spondylitis
     Route: 050
     Dates: start: 20240910

REACTIONS (3)
  - Lower limb fracture [Recovering/Resolving]
  - Accident [Recovering/Resolving]
  - Hepatic cyst [Unknown]

NARRATIVE: CASE EVENT DATE: 20250701
